FAERS Safety Report 23419098 (Version 3)
Quarter: 2024Q1

REPORT INFORMATION
  Report Type: Spontaneous
  Country: JP (occurrence: None)
  Receive Date: 20240118
  Receipt Date: 20240216
  Transmission Date: 20240410
  Serious: Yes (Hospitalization)
  Sender: FDA-Public Use
  Company Number: 2023A274459

PATIENT
  Age: 70 Year
  Sex: Male

DRUGS (29)
  1. CRESTOR [Suspect]
     Active Substance: ROSUVASTATIN CALCIUM
     Indication: Dyslipidaemia
     Route: 048
     Dates: start: 2023
  2. DAPAGLIFLOZIN [Suspect]
     Active Substance: DAPAGLIFLOZIN
     Indication: Diabetes mellitus
     Dosage: MORNING
     Route: 048
     Dates: start: 20230224
  3. DAPAGLIFLOZIN [Suspect]
     Active Substance: DAPAGLIFLOZIN
     Indication: Type 2 diabetes mellitus
     Dosage: MORNING
     Route: 048
     Dates: start: 20230224
  4. REQUIP [Suspect]
     Active Substance: ROPINIROLE HYDROCHLORIDE
     Dosage: BEFORE SLEEP
     Route: 048
     Dates: start: 2023
  5. ONGENTYS [Concomitant]
     Active Substance: OPICAPONE
     Indication: Parkinson^s disease
     Dosage: BEFORE BEDTIME
     Route: 048
     Dates: start: 20220601, end: 20230222
  6. ONGENTYS [Concomitant]
     Active Substance: OPICAPONE
     Indication: Parkinson^s disease
     Dosage: DOSE UNKNOWN
  7. ONGENTYS [Concomitant]
     Active Substance: OPICAPONE
     Indication: Parkinson^s disease
     Dosage: BEFORE BEDTIME
     Route: 048
     Dates: start: 202402
  8. CARBIDOPA\LEVODOPA [Concomitant]
     Active Substance: CARBIDOPA\LEVODOPA
     Dosage: AFTER EVERY MEAL
     Route: 048
  9. CARBIDOPA\LEVODOPA [Concomitant]
     Active Substance: CARBIDOPA\LEVODOPA
     Dosage: AFTER EVERY MEAL
     Route: 048
  10. CARBIDOPA\LEVODOPA [Concomitant]
     Active Substance: CARBIDOPA\LEVODOPA
     Dosage: 10:00, 15:00
     Route: 048
  11. CARBIDOPA\LEVODOPA [Concomitant]
     Active Substance: CARBIDOPA\LEVODOPA
     Dosage: 10:00, 15:00
     Route: 048
  12. AMITIZA [Concomitant]
     Active Substance: LUBIPROSTONE
     Dosage: MORNING AND EVENING
     Route: 048
  13. CILOSTAZOL [Concomitant]
     Active Substance: CILOSTAZOL
     Dosage: MORNING AND EVENING
     Route: 048
  14. SELEGILINE HYDROCHLORIDE [Concomitant]
     Active Substance: SELEGILINE HYDROCHLORIDE
     Dosage: MORNING AND LUNCH
     Route: 048
  15. CANAGLIFLOZIN\TENELIGLIPTIN [Concomitant]
     Active Substance: CANAGLIFLOZIN\TENELIGLIPTIN
     Dosage: MORNING
     Route: 048
     Dates: end: 2023
  16. NEUPRO [Concomitant]
     Active Substance: ROTIGOTINE
     Dosage: NUMBER OF SEPARATE DOSAGES UNKNOWN
     Route: 062
  17. VONOPRAZAN FUMARATE [Concomitant]
     Active Substance: VONOPRAZAN FUMARATE
     Dosage: MORNING
     Route: 048
  18. ISTRADEFYLLINE [Concomitant]
     Active Substance: ISTRADEFYLLINE
     Dosage: NUMBER OF SEPARATE DOSAGES UNKNOWN
     Route: 048
  19. ISTRADEFYLLINE [Concomitant]
     Active Substance: ISTRADEFYLLINE
     Dosage: NUMBER OF SEPARATE DOSAGES UNKNOWN
     Route: 048
  20. LOXOPROFEN [Concomitant]
     Active Substance: LOXOPROFEN
     Dosage: AFTER EVERY MEAL
     Route: 048
  21. PRASUGREL HYDROCHLORIDE [Concomitant]
     Active Substance: PRASUGREL HYDROCHLORIDE
     Dosage: EVENING
     Route: 048
  22. LINZESS [Concomitant]
     Active Substance: LINACLOTIDE
     Dosage: BEFORE SLEEP
     Route: 048
  23. JANUVIA [Concomitant]
     Active Substance: SITAGLIPTIN PHOSPHATE
     Dosage: MORNING
     Route: 048
  24. AMANTADINE HYDROCHLORIDE [Concomitant]
     Active Substance: AMANTADINE HYDROCHLORIDE
     Dosage: MORNING AND EVENING
     Route: 048
     Dates: start: 2023
  25. TRERIEF OD [Concomitant]
     Dosage: MORNING
     Route: 048
  26. DAIMEDIN [Concomitant]
     Dosage: MORNING AND EVENING
     Route: 048
  27. VIBEGRON [Concomitant]
     Active Substance: VIBEGRON
     Dosage: EVENING
     Route: 048
  28. APOKYN [Concomitant]
     Active Substance: APOMORPHINE HYDROCHLORIDE
     Dosage: DOSE UNKNOWN
  29. ROSUVASTATIN [Concomitant]
     Active Substance: ROSUVASTATIN
     Dosage: MORNING
     Route: 048
     Dates: end: 2023

REACTIONS (3)
  - Dyskinesia [Recovered/Resolved]
  - Pain in extremity [Unknown]
  - Arthralgia [Unknown]

NARRATIVE: CASE EVENT DATE: 20221202
